FAERS Safety Report 17518235 (Version 2)
Quarter: 2020Q2

REPORT INFORMATION
  Report Type: Spontaneous
  Country: US (occurrence: US)
  Receive Date: 20200309
  Receipt Date: 20200402
  Transmission Date: 20200713
  Serious: No
  Sender: FDA-Public Use
  Company Number: US-ASTRAZENECA-2020SE33413

PATIENT
  Sex: Male
  Weight: 145.2 kg

DRUGS (2)
  1. BYDUREON [Suspect]
     Active Substance: EXENATIDE
     Indication: BLOOD GLUCOSE INCREASED
     Route: 058
  2. BYDUREON BCISE [Suspect]
     Active Substance: EXENATIDE
     Indication: BLOOD GLUCOSE INCREASED
     Route: 058

REACTIONS (5)
  - Needle issue [Unknown]
  - Product dose omission [Not Recovered/Not Resolved]
  - Device delivery system issue [Unknown]
  - Glycosylated haemoglobin increased [Recovered/Resolved]
  - Inability to afford medication [Unknown]
